FAERS Safety Report 5573625-8 (Version None)
Quarter: 2007Q4

REPORT INFORMATION
  Report Type: 
  Country: None (occurrence: None)
  Receive Date: 20071226
  Receipt Date: 20071219
  Transmission Date: 20080405
  Serious: Yes (Hospitalization, Other)
  Sender: FDA-Public Use
  Company Number: US-ELI_LILLY_AND_COMPANY-US200711006935

PATIENT
  Sex: Male
  Weight: 136.5 kg

DRUGS (26)
  1. BYETTA [Suspect]
     Dosage: 5 UG, 2/D
     Route: 058
     Dates: start: 20060512, end: 20060706
  2. BYETTA [Suspect]
     Dosage: 10 UG, 2/D
     Route: 058
     Dates: start: 20060706, end: 20071121
  3. FUROSEMIDE [Concomitant]
     Dosage: 40 MG, 4/D
     Route: 065
  4. NOVOLOG MIX 70/30 [Concomitant]
     Dosage: 70 U, 2/D
     Route: 065
  5. ALLOPURINOL [Concomitant]
     Dosage: 300 MG, DAILY (1/D)
     Route: 065
  6. ACCUPRIL [Concomitant]
     Dosage: 20 MG, DAILY (1/D)
  7. TOPROL-XL [Concomitant]
     Dosage: 200 MG, DAILY (1/D)
     Route: 065
  8. ENTERIC ASPIRIN [Concomitant]
     Dosage: 325 MG, DAILY (1/D)
     Route: 065
  9. CRESTOR [Concomitant]
     Dosage: 40 MG, DAILY (1/D)
     Route: 065
  10. TRICOR [Concomitant]
     Dosage: 140 MG, DAILY (1/D)
     Route: 065
  11. FOLIC ACID [Concomitant]
     Dosage: 800 UG, DAILY (1/D)
     Route: 065
  12. ASCORBIC ACID [Concomitant]
     Dosage: 500 MG, DAILY (1/D)
     Route: 065
  13. MULTI-VITAMIN [Concomitant]
     Dosage: UNK, DAILY (1/D)
     Route: 065
  14. B COMPLEX /00212701/ [Concomitant]
     Dosage: UNK, DAILY (1/D)
     Route: 065
  15. WELCHOL [Concomitant]
     Dosage: 625 MG, OTHER
     Route: 065
  16. PRILOSEC [Concomitant]
     Dosage: 20 MG, DAILY (1/D)
     Route: 065
  17. VITAMIN B6 [Concomitant]
     Dosage: 100 MG, DAILY (1/D)
     Route: 065
  18. PLAVIX [Concomitant]
     Dosage: 75 MG, DAILY (1/D)
     Route: 065
  19. IMDUR [Concomitant]
     Dosage: 120 MG, DAILY (1/D)
     Route: 065
  20. NORVASC [Concomitant]
     Dosage: 10 MG, DAILY (1/D)
     Route: 065
  21. ZETIA [Concomitant]
     Dosage: 10 MG, DAILY (1/D)
     Route: 065
  22. AVAPRO [Concomitant]
     Dosage: 150 MG, DAILY (1/D)
     Route: 065
  23. FISH OIL [Concomitant]
     Dosage: 1000 MG, 4/D
     Route: 065
  24. ADVAIR DISKUS 100/50 [Concomitant]
     Dosage: UNK, 2/D
     Route: 065
  25. LAMISIL [Concomitant]
     Dosage: UNK, UNKNOWN
     Route: 061
  26. NITROGLYCERIN [Concomitant]
     Dosage: 0.4 MG, AS NEEDED

REACTIONS (1)
  - PANCREATITIS [None]
